FAERS Safety Report 21289661 (Version 1)
Quarter: 2022Q3

REPORT INFORMATION
  Report Type: Spontaneous
  Country: US (occurrence: None)
  Receive Date: 20220902
  Receipt Date: 20220902
  Transmission Date: 20221027
  Serious: Yes (Other)
  Sender: FDA-Public Use
  Company Number: 2022A304293

PATIENT
  Age: 35 Year
  Sex: Male

DRUGS (8)
  1. OLAPARIB [Suspect]
     Active Substance: OLAPARIB
     Indication: Astrocytoma, low grade
     Dosage: 150 MILLIGRAM, TIW; 6 WEEKS ON/2 WEEKS OFF
     Route: 048
  2. OLAPARIB [Suspect]
     Active Substance: OLAPARIB
     Indication: Isocitrate dehydrogenase gene mutation
     Dosage: 150 MILLIGRAM, TIW; 6 WEEKS ON/2 WEEKS OFF
     Route: 048
  3. OLAPARIB [Suspect]
     Active Substance: OLAPARIB
     Indication: Astrocytoma, low grade
     Route: 048
  4. OLAPARIB [Suspect]
     Active Substance: OLAPARIB
     Indication: Isocitrate dehydrogenase gene mutation
     Route: 048
  5. TEMODAR [Suspect]
     Active Substance: TEMOZOLOMIDE
     Indication: Astrocytoma, low grade
     Dosage: 75 MILLIGRAM/SQ. METER, QD; 6 WEEKS ON/2 WEEKS OFF
     Route: 048
  6. TEMODAR [Suspect]
     Active Substance: TEMOZOLOMIDE
     Indication: Isocitrate dehydrogenase gene mutation
     Dosage: 75 MILLIGRAM/SQ. METER, QD; 6 WEEKS ON/2 WEEKS OFF
     Route: 048
  7. TEMODAR [Suspect]
     Active Substance: TEMOZOLOMIDE
     Indication: Astrocytoma, low grade
     Dosage: 50.0MG UNKNOWN
     Route: 048
  8. TEMODAR [Suspect]
     Active Substance: TEMOZOLOMIDE
     Indication: Isocitrate dehydrogenase gene mutation
     Dosage: 50.0MG UNKNOWN
     Route: 048

REACTIONS (3)
  - Product use issue [Unknown]
  - Fatigue [Unknown]
  - Constipation [Unknown]
